FAERS Safety Report 9424367 (Version 1)
Quarter: 2013Q3

REPORT INFORMATION
  Report Type: Spontaneous
  Country: US (occurrence: None)
  Receive Date: 20130726
  Receipt Date: 20130726
  Transmission Date: 20140515
  Serious: No
  Sender: FDA-Public Use
  Company Number: None

PATIENT
  Age: 24 Year
  Sex: Female
  Weight: 60.78 kg

DRUGS (1)
  1. SUBOXONE [Suspect]
     Indication: DRUG DEPENDENCE
     Dosage: 8/2 MG BID PO (SL)
     Route: 048
     Dates: start: 20121206, end: 20130307

REACTIONS (2)
  - Oral mucosal blistering [None]
  - Swollen tongue [None]
